FAERS Safety Report 14875401 (Version 3)
Quarter: 2018Q2

REPORT INFORMATION
  Report Type: Spontaneous
  Country: US (occurrence: US)
  Receive Date: 20180510
  Receipt Date: 20180621
  Transmission Date: 20180711
  Serious: Yes (Other)
  Sender: FDA-Public Use
  Company Number: PHEH2018US017263

PATIENT
  Age: 41 Year
  Sex: Male
  Weight: 97.5 kg

DRUGS (2)
  1. GILENYA [Suspect]
     Active Substance: FINGOLIMOD HYDROCHLORIDE
     Dosage: 0.5 MG, QD
     Route: 048
     Dates: start: 20180403
  2. GILENYA [Suspect]
     Active Substance: FINGOLIMOD HYDROCHLORIDE
     Indication: RELAPSING-REMITTING MULTIPLE SCLEROSIS
     Dosage: 0.5 MG, BID
     Route: 048
     Dates: start: 20150101

REACTIONS (2)
  - Drug monitoring procedure not performed [Not Recovered/Not Resolved]
  - Tremor [Unknown]

NARRATIVE: CASE EVENT DATE: 20170814
